FAERS Safety Report 8139569-2 (Version None)
Quarter: 2012Q1

REPORT INFORMATION
  Report Type: 
  Country: None (occurrence: None)
  Receive Date: 20120215
  Receipt Date: 20120214
  Transmission Date: 20120608
  Serious: Yes (Other)
  Sender: FDA-Public Use
  Company Number: US-JNJFOC-20111203476

PATIENT
  Age: 81 Year
  Sex: Female
  Weight: 61.69 kg

DRUGS (2)
  1. LISTERINE VANILLA MINT [Suspect]
     Indication: DENTAL DISORDER PROPHYLAXIS
     Dosage: 1/2 CAPFUL ONCE
     Route: 048
     Dates: start: 20111205, end: 20111205
  2. ASPIRIN [Concomitant]
     Indication: PROPHYLAXIS
     Route: 065

REACTIONS (1)
  - GLOSSODYNIA [None]
